FAERS Safety Report 7753266-4 (Version None)
Quarter: 2011Q3

REPORT INFORMATION
  Report Type: 
  Country: None (occurrence: None)
  Receive Date: 20110915
  Receipt Date: 20110718
  Transmission Date: 20111222
  Serious: No
  Sender: FDA-Public Use
  Company Number: US-GLAXOSMITHKLINE-A0937118A

PATIENT
  Age: 64 Year
  Sex: Female

DRUGS (2)
  1. NICORETTE [Suspect]
     Indication: EX-TOBACCO USER
     Dates: start: 20110717, end: 20110717
  2. NICODERM CQ [Suspect]
     Indication: EX-TOBACCO USER
     Dates: start: 20110619, end: 20110716

REACTIONS (4)
  - FLATULENCE [None]
  - NAUSEA [None]
  - DIZZINESS [None]
  - DRUG ADMINISTRATION ERROR [None]
